FAERS Safety Report 19899058 (Version 1)
Quarter: 2021Q3

REPORT INFORMATION
  Report Type: Spontaneous
  Country: US (occurrence: US)
  Receive Date: 20210930
  Receipt Date: 20210930
  Transmission Date: 20211014
  Serious: Yes (Other)
  Sender: FDA-Public Use
  Company Number: US-NOVOPROD-851599

PATIENT
  Age: 57 Year
  Sex: Female

DRUGS (3)
  1. WEGOVY [Suspect]
     Active Substance: SEMAGLUTIDE
     Indication: PRODUCT USED FOR UNKNOWN INDICATION
     Dosage: 0.25 MG
     Route: 058
     Dates: start: 2021, end: 2021
  2. WEGOVY [Suspect]
     Active Substance: SEMAGLUTIDE
     Dosage: 0.25 MG
     Route: 058
     Dates: start: 202109
  3. WEGOVY [Suspect]
     Active Substance: SEMAGLUTIDE
     Dosage: 0.5 MG, QW
     Route: 058
     Dates: start: 20210921, end: 202109

REACTIONS (4)
  - Polyp [Recovered/Resolved]
  - Diarrhoea [Recovered/Resolved]
  - Dehydration [Recovering/Resolving]
  - Dry mouth [Not Recovered/Not Resolved]

NARRATIVE: CASE EVENT DATE: 20210615
